FAERS Safety Report 6576150-0 (Version None)
Quarter: 2010Q1

REPORT INFORMATION
  Report Type: 
  Country: None (occurrence: None)
  Receive Date: 20100209
  Receipt Date: 20100202
  Transmission Date: 20100710
  Serious: Yes (Other)
  Sender: FDA-Public Use
  Company Number: CHPA2010GB02279

PATIENT
  Sex: Female

DRUGS (2)
  1. SCOPOLAMINE [Suspect]
     Indication: SALIVARY HYPERSECRETION
     Dosage: 1 DF, UNK
     Route: 062
     Dates: start: 20091101
  2. SCOPOLAMINE [Suspect]
     Dosage: 2 DF, UNK
     Route: 062

REACTIONS (6)
  - DRUG INEFFECTIVE FOR UNAPPROVED INDICATION [None]
  - HALLUCINATION [None]
  - MALAISE [None]
  - MENTAL DISORDER [None]
  - OFF LABEL USE [None]
  - OVERDOSE [None]
